FAERS Safety Report 5179447-4 (Version None)
Quarter: 2006Q4

REPORT INFORMATION
  Report Type: 
  Country: None (occurrence: None)
  Receive Date: 20061211
  Receipt Date: 20061129
  Transmission Date: 20070319
  Serious: Yes (Other)
  Sender: FDA-Public Use
  Company Number: JP-2006-033064

PATIENT
  Age: 65 Year
  Sex: Female

DRUGS (1)
  1. SOTALOL HYDROCHLORIDE [Suspect]
     Indication: ATRIAL FIBRILLATION
     Dosage: 40 MG, 2X/DAY, ORAL
     Route: 048
     Dates: start: 20060101, end: 20060101

REACTIONS (8)
  - BRADYCARDIA [None]
  - CARDIAC ARREST [None]
  - CARDIOACTIVE DRUG LEVEL INCREASED [None]
  - DIABETIC COMPLICATION [None]
  - DIALYSIS [None]
  - ELECTROMECHANICAL DISSOCIATION [None]
  - LOSS OF CONSCIOUSNESS [None]
  - NEPHROTIC SYNDROME [None]
